FAERS Safety Report 9485975 (Version 1)
Quarter: 2013Q3

REPORT INFORMATION
  Report Type: Spontaneous
  Country: US (occurrence: None)
  Receive Date: 20130827
  Receipt Date: 20130827
  Transmission Date: 20140515
  Serious: No
  Sender: FDA-Public Use
  Company Number: None

PATIENT
  Age: 47 Year
  Sex: Female

DRUGS (1)
  1. TECFIDERA [Suspect]
     Indication: MULTIPLE SCLEROSIS
     Dosage: TX BEGAN 8/13/13 + IS ONGOING?1 PILL BID ORAL
     Route: 048
     Dates: start: 20130813

REACTIONS (1)
  - Burning sensation [None]
